FAERS Safety Report 6154659-1 (Version None)
Quarter: 2009Q2

REPORT INFORMATION
  Report Type: 
  Country: None (occurrence: None)
  Receive Date: 20090414
  Receipt Date: 20090318
  Transmission Date: 20091009
  Serious: Yes (Hospitalization)
  Sender: FDA-Public Use
  Company Number: GB-B.I. PHARMACEUTICALS,INC./RIDGEFIELD-2009-UK-00265UK

PATIENT
  Sex: Male

DRUGS (6)
  1. PRAMIPEXOLE DIHYDROCHLORIDE [Suspect]
     Indication: PARKINSON'S DISEASE
     Dosage: ON REDUCED DOSE OF 0.5 MG TDS FOR 1 MONTH
     Dates: start: 20061001
  2. STALEVO 100 [Concomitant]
     Indication: PARKINSON'S DISEASE
     Dosage: 150/ 37.5 X 6 DOSES
     Route: 048
     Dates: start: 20060301
  3. AMANTADINE HCL [Concomitant]
     Indication: PARKINSON'S DISEASE
     Dosage: 100MG
     Route: 048
     Dates: start: 20050701
  4. AMITRIPTYLINE HCL [Concomitant]
     Indication: PARKINSON'S DISEASE
     Dosage: 20MG
     Route: 048
     Dates: start: 20040901
  5. SINEMET CR [Concomitant]
     Indication: PARKINSON'S DISEASE
     Dosage: 875MG
     Route: 048
  6. SINEMET CR [Concomitant]
     Indication: PARKINSON'S DISEASE
     Dosage: X2 TABLETS
     Route: 048

REACTIONS (2)
  - HALLUCINATION, TACTILE [None]
  - INJURY [None]
